FAERS Safety Report 5967536-3 (Version None)
Quarter: 2008Q4

REPORT INFORMATION
  Report Type: 
  Country: None (occurrence: None)
  Receive Date: 20081125
  Receipt Date: 20081113
  Transmission Date: 20090506
  Serious: Yes (Other)
  Sender: FDA-Public Use
  Company Number: FR-PFIZER INC-2008097059

PATIENT
  Sex: Female

DRUGS (2)
  1. CHAMPIX [Suspect]
     Indication: SMOKING CESSATION THERAPY
  2. DRUG, UNSPECIFIED [Concomitant]

REACTIONS (3)
  - DYSPNOEA [None]
  - MUSCLE SPASMS [None]
  - TREMOR [None]
